FAERS Safety Report 23085656 (Version 1)
Quarter: 2023Q4

REPORT INFORMATION
  Report Type: Spontaneous
  Country: US (occurrence: US)
  Receive Date: 20231019
  Receipt Date: 20231019
  Transmission Date: 20240109
  Serious: No
  Sender: FDA-Public Use
  Company Number: US-PFIZER INC-PV202300170784

PATIENT
  Age: 24 Year
  Sex: Female

DRUGS (4)
  1. AZITHROMYCIN [Suspect]
     Active Substance: AZITHROMYCIN
     Indication: Atypical mycobacterial lower respiratory tract infection
     Dosage: 500 MG, DAILY
  2. LINEZOLID [Suspect]
     Active Substance: LINEZOLID
     Indication: Atypical mycobacterial lower respiratory tract infection
     Dosage: 600 MG, DAILY
  3. OMADACYCLINE [Suspect]
     Active Substance: OMADACYCLINE
     Indication: Atypical mycobacterial lower respiratory tract infection
     Dosage: 300 MG, DAILY
  4. ARIKAYCE [Suspect]
     Active Substance: AMIKACIN
     Indication: Atypical mycobacterial lower respiratory tract infection
     Dosage: 590MG/8.4ML, DAILY (INHALED)

REACTIONS (2)
  - Pulmonary function test decreased [Unknown]
  - Off label use [Unknown]
